FAERS Safety Report 5379527-4 (Version None)
Quarter: 2007Q3

REPORT INFORMATION
  Report Type: 
  Country: None (occurrence: None)
  Receive Date: 20070703
  Receipt Date: 20070624
  Transmission Date: 20080115
  Serious: Yes (Hospitalization)
  Sender: FDA-Public Use
  Company Number: TAP2007Q00846

PATIENT
  Age: 40 Year
  Sex: Male

DRUGS (5)
  1. PREVACID [Suspect]
     Dates: end: 20070522
  2. PROTONIX [Suspect]
     Dosage: 40 MG, 1 IN 1 D, ORAL
     Route: 048
     Dates: start: 20070523
  3. PHENYTOIN SODIUM [Suspect]
     Indication: CONVULSION
  4. MULTIVITAMIN [Concomitant]
  5. GABAPENTIN [Concomitant]

REACTIONS (2)
  - ANTICONVULSANT DRUG LEVEL DECREASED [None]
  - DRUG INTERACTION [None]
